FAERS Safety Report 7637480-4 (Version None)
Quarter: 2011Q3

REPORT INFORMATION
  Report Type: 
  Country: None (occurrence: None)
  Receive Date: 20110726
  Receipt Date: 20110714
  Transmission Date: 20111222
  Serious: Yes (Hospitalization)
  Sender: FDA-Public Use
  Company Number: PHHY2011US39893

PATIENT
  Sex: Male

DRUGS (1)
  1. TRILEPTAL [Suspect]
     Indication: CONVULSION
     Dosage: 300 MG, BID
     Route: 048

REACTIONS (6)
  - POSTICTAL STATE [None]
  - WHITE BLOOD CELL COUNT INCREASED [None]
  - CONVULSION [None]
  - EYE INJURY [None]
  - ANXIETY [None]
  - C-REACTIVE PROTEIN DECREASED [None]
